FAERS Safety Report 7224824-0 (Version None)
Quarter: 2011Q1

REPORT INFORMATION
  Report Type: 
  Country: None (occurrence: None)
  Receive Date: 20110103
  Receipt Date: 20101216
  Transmission Date: 20110831
  Serious: Yes (Life-Threatening)
  Sender: FDA-Public Use
  Company Number: 012388

PATIENT
  Age: 58 Year
  Sex: Male

DRUGS (3)
  1. CAMPATH USA (ALEMTUZUMAB) [Concomitant]
  2. BUSULFEX [Suspect]
     Indication: STEM CELL TRANSPLANT
     Dosage: 1 MG/KG, DAILY DOSE, INTRAVENOUS
     Route: 042
     Dates: start: 20080602, end: 20080603
  3. FLUDARABINE PHOSPHATE [Concomitant]

REACTIONS (1)
  - EPSTEIN-BARR VIRUS INFECTION [None]
